FAERS Safety Report 6248593-6 (Version None)
Quarter: 2009Q2

REPORT INFORMATION
  Report Type: 
  Country: None (occurrence: None)
  Receive Date: 20090629
  Receipt Date: 20090619
  Transmission Date: 20091009
  Serious: Yes (Hospitalization, Other)
  Sender: FDA-Public Use
  Company Number: US-BAYER-200921665NA

PATIENT
  Age: 87 Year
  Sex: Female

DRUGS (10)
  1. NEXAVAR [Suspect]
     Indication: GASTROINTESTINAL STROMAL TUMOUR
     Dosage: TOTAL DAILY DOSE: 400 MG  UNIT DOSE: 200 MG
     Route: 048
     Dates: start: 20090522, end: 20090526
  2. NEXAVAR [Suspect]
     Dosage: TOTAL DAILY DOSE: 400 MG  UNIT DOSE: 200 MG
     Route: 048
  3. LOTENSIN [Concomitant]
     Dosage: TOTAL DAILY DOSE: 80 MG
     Route: 048
     Dates: start: 20090523
  4. LOTENSIN [Concomitant]
     Dosage: EXTRA 20 MG
     Dates: start: 20090522
  5. LOTENSIN [Concomitant]
  6. COREG [Concomitant]
  7. HYDRALAZINE HCL [Concomitant]
     Dates: start: 20090523
  8. HYDRALAZINE HCL [Concomitant]
  9. LASIX [Concomitant]
  10. ASPIRIN [Concomitant]
     Dosage: TOTAL DAILY DOSE: 81 MG

REACTIONS (18)
  - BLOOD PRESSURE DECREASED [None]
  - BLOOD PRESSURE INCREASED [None]
  - BLOOD SODIUM DECREASED [None]
  - DECREASED APPETITE [None]
  - DRY MOUTH [None]
  - EPISTAXIS [None]
  - FAECES PALE [None]
  - FEELING HOT [None]
  - NAUSEA [None]
  - PLATELET COUNT DECREASED [None]
  - PRURITUS [None]
  - RASH [None]
  - RASH MACULAR [None]
  - SINUS HEADACHE [None]
  - SKIN WARM [None]
  - SPUTUM RETENTION [None]
  - VOMITING [None]
  - WEIGHT DECREASED [None]
